FAERS Safety Report 14112780 (Version 1)
Quarter: 2017Q4

REPORT INFORMATION
  Report Type: Spontaneous
  Country: US (occurrence: US)
  Receive Date: 20171021
  Receipt Date: 20171021
  Transmission Date: 20180321
  Serious: No
  Sender: FDA-Public Use
  Company Number: US-009507513-1709USA014865

PATIENT
  Sex: Female

DRUGS (6)
  1. CLARINEX [Suspect]
     Active Substance: DESLORATADINE
     Indication: EXCESSIVE CERUMEN PRODUCTION
     Dosage: UNK
     Route: 048
  2. LORYNA [Concomitant]
     Active Substance: DROSPIRENONE\ETHINYL ESTRADIOL
     Dosage: UNK
  3. SYNTHROID [Concomitant]
     Active Substance: LEVOTHYROXINE SODIUM
     Dosage: UNK
  4. DESLORATADINE. [Concomitant]
     Active Substance: DESLORATADINE
     Indication: EXCESSIVE CERUMEN PRODUCTION
  5. DESLORATADINE. [Concomitant]
     Active Substance: DESLORATADINE
     Indication: HYPERAESTHESIA
     Dosage: UNK
     Dates: start: 2007
  6. CLARINEX [Suspect]
     Active Substance: DESLORATADINE
     Indication: HYPERAESTHESIA
     Dosage: UNK
     Route: 048
     Dates: start: 2002, end: 2007

REACTIONS (2)
  - Product use in unapproved indication [Unknown]
  - Therapeutic response unexpected [Unknown]

NARRATIVE: CASE EVENT DATE: 2002
